FAERS Safety Report 11342422 (Version 1)
Quarter: 2015Q3

REPORT INFORMATION
  Report Type: Spontaneous
  Country: AU (occurrence: AU)
  Receive Date: 20150805
  Receipt Date: 20150805
  Transmission Date: 20151125
  Serious: Yes (Death, Other)
  Sender: FDA-Public Use
  Company Number: PHHY2015AU090608

PATIENT
  Age: 66 Year
  Sex: Male

DRUGS (4)
  1. PREDNISONE. [Suspect]
     Active Substance: PREDNISONE
     Indication: COLITIS ULCERATIVE
     Route: 065
  2. INFLIXIMAB [Suspect]
     Active Substance: INFLIXIMAB
     Indication: COLITIS ULCERATIVE
     Route: 065
  3. AZATHIOPRINE. [Suspect]
     Active Substance: AZATHIOPRINE
     Indication: COLITIS ULCERATIVE
     Dosage: UNK
     Route: 065
  4. MESALAZINE [Suspect]
     Active Substance: MESALAMINE
     Indication: COLITIS ULCERATIVE
     Route: 065

REACTIONS (12)
  - Pneumonia aspiration [Fatal]
  - Leukopenia [Unknown]
  - Listeriosis [Fatal]
  - Somnolence [Unknown]
  - Listeria encephalitis [Fatal]
  - Immunosuppression [Unknown]
  - Anaemia [Unknown]
  - Drug ineffective [Unknown]
  - White matter lesion [Unknown]
  - Oedema [Unknown]
  - Hemiplegia [Unknown]
  - Encephalitis [Fatal]
